FAERS Safety Report 11871134 (Version 5)
Quarter: 2016Q1

REPORT INFORMATION
  Report Type: Report from Study
  Country: RO (occurrence: RO)
  Receive Date: 20151228
  Receipt Date: 20160212
  Transmission Date: 20160526
  Serious: Yes (Life-Threatening, Other)
  Sender: FDA-Public Use
  Company Number: RO-NOVOPROD-474481

PATIENT
  Age: 45 Year
  Sex: Male
  Weight: 108 kg

DRUGS (3)
  1. NORDITROPIN [Suspect]
     Active Substance: SOMATROPIN
     Indication: GROWTH HORMONE DEFICIENCY
     Dosage: 0.25 MG, QD
     Route: 058
     Dates: start: 20150427, end: 20151218
  2. NEBIDO [Concomitant]
     Active Substance: TESTOSTERONE UNDECANOATE
     Indication: GONADOTROPHIN DEFICIENCY
     Dosage: 1000 MG, AT 3. MONTHS
     Route: 030
     Dates: start: 200803
  3. NORDITROPIN [Suspect]
     Active Substance: SOMATROPIN
     Dosage: 0.20 MG, QD
     Route: 058
     Dates: start: 20151219, end: 20151220

REACTIONS (2)
  - Haemoconcentration [Recovered/Resolved]
  - Blood testosterone increased [Recovered/Resolved]

NARRATIVE: CASE EVENT DATE: 20151218
